FAERS Safety Report 8489151-2 (Version None)
Quarter: 2012Q3

REPORT INFORMATION
  Report Type: 
  Country: None (occurrence: None)
  Receive Date: 20120705
  Receipt Date: 20120626
  Transmission Date: 20120928
  Serious: Yes (Other)
  Sender: FDA-Public Use
  Company Number: US-ASTRAZENECA-2011SE33875

PATIENT
  Age: 74 Year
  Sex: Female

DRUGS (20)
  1. ATACAND [Suspect]
     Route: 048
  2. ZYRTEC [Concomitant]
     Indication: HYPERSENSITIVITY
  3. QVAR 40 [Concomitant]
  4. ONE A DAY [Concomitant]
  5. SYMBICORT [Suspect]
     Dosage: 160/4.5 MCG, 2 PUFFS TWO TIMES A DAY
     Route: 055
     Dates: start: 20110301
  6. ALBUTEROL [Concomitant]
  7. E SUP [Concomitant]
  8. AYR [Concomitant]
  9. CARTIA XT [Concomitant]
  10. SINGULAIR [Concomitant]
     Dosage: 1 A DAY
  11. ALENDRONATE SODIUM [Concomitant]
  12. FISH OIL [Concomitant]
  13. SYMBICORT [Suspect]
     Dosage: 80/4.5 MCG, 2 PUFFS ONCE A DAY
     Route: 055
  14. LEVOXYL [Concomitant]
  15. CARVEDILOL [Concomitant]
  16. CALCIUM D3 [Concomitant]
  17. NEXIUM [Suspect]
     Route: 048
  18. VAPO RUB [Concomitant]
  19. BENAFIBER [Concomitant]
  20. VITAMIN - ES [Concomitant]

REACTIONS (12)
  - MULTIPLE ALLERGIES [None]
  - DRY EYE [None]
  - SPINAL FRACTURE [None]
  - LUNG DISORDER [None]
  - LUNG INFECTION [None]
  - HAEMORRHOIDS [None]
  - PRURITUS [None]
  - CATARACT [None]
  - BACK PAIN [None]
  - ASTHMA [None]
  - BACK INJURY [None]
  - HYPERTENSION [None]
